FAERS Safety Report 14924405 (Version 1)
Quarter: 2018Q2

REPORT INFORMATION
  Report Type: Spontaneous
  Country: JP (occurrence: JP)
  Receive Date: 20180522
  Receipt Date: 20180522
  Transmission Date: 20180711
  Serious: Yes (Other)
  Sender: FDA-Public Use
  Company Number: JP-GLAXOSMITHKLINE-JP2018JPN085854

PATIENT
  Age: 5 Decade
  Sex: Female

DRUGS (10)
  1. LAMICTAL [Suspect]
     Active Substance: LAMOTRIGINE
     Indication: BIPOLAR DISORDER
     Dosage: 200 MG, BID
     Route: 048
     Dates: end: 20180501
  2. PURSENNID [Concomitant]
     Active Substance: SENNOSIDES A AND B
     Dosage: UNK
  3. FERROMIA (JAPAN) [Concomitant]
     Dosage: UNK
  4. YOKUKANSANKACHIMPIHANGE [Concomitant]
     Dosage: UNK
  5. ETHYL ICOSAPENTATE [Concomitant]
     Active Substance: ICOSAPENT ETHYL
     Dosage: UNK
  6. LUNESTA [Concomitant]
     Active Substance: ESZOPICLONE
     Dosage: UNK
  7. LIMAS [Concomitant]
     Active Substance: LITHIUM CARBONATE
     Dosage: UNK
  8. BELSOMRA [Concomitant]
     Active Substance: SUVOREXANT
     Dosage: UNK
  9. TOKAKUJOKITO [Concomitant]
     Dosage: UNK
  10. BIPRESSO (QUETIAPINE FUMARATE) [Concomitant]
     Active Substance: QUETIAPINE FUMARATE
     Dosage: UNK

REACTIONS (1)
  - Lymphoma [Unknown]
